FAERS Safety Report 9786013 (Version 3)
Quarter: 2014Q1

REPORT INFORMATION
  Report Type: Report from Study
  Country: GB (occurrence: GB)
  Receive Date: 20131227
  Receipt Date: 20140117
  Transmission Date: 20141002
  Serious: Yes (Death, Hospitalization)
  Sender: FDA-Public Use
  Company Number: GB-PFIZER INC-2012184931

PATIENT
  Age: 19 Year
  Sex: Female
  Weight: 71.2 kg

DRUGS (29)
  1. SUNITINIB MALATE [Suspect]
     Indication: METASTATIC OCULAR MELANOMA
     Dosage: 50 MG, 1X/DAY
     Route: 048
     Dates: start: 20120625, end: 20120717
  2. CIPROFLOXACIN [Concomitant]
     Dosage: 500 MG, 2X/DAY
     Route: 048
  3. DOMPERIDONE [Concomitant]
     Indication: ANTIEMETIC SUPPORTIVE CARE
     Dosage: 10 MG, 3X/DAY
     Route: 048
  4. DOMPERIDONE [Concomitant]
     Dosage: 20 MG, 3X/DAY
     Dates: start: 20120725
  5. FLUDROCORTISONE [Concomitant]
     Dosage: 50 UG, 1X/DAY
     Route: 048
  6. LANSOPRAZOLE [Concomitant]
     Dosage: 30 MG, 1X/DAY
     Route: 048
  7. LORAZEPAM [Concomitant]
     Dosage: 0.5 MG, 1X/DAY AT NIGHT
     Route: 048
  8. SENNA [Concomitant]
     Indication: CONSTIPATION
     Dosage: 3 DF, 1X/DAY
     Route: 048
  9. SENNA [Concomitant]
     Dosage: 2 DF, 2X/DAY
     Route: 048
     Dates: start: 20120716, end: 20120729
  10. MORPHINE [Concomitant]
     Dosage: 30 MG, EVERY 24 HOURS
     Route: 058
  11. MORPHINE [Concomitant]
     Dosage: 10 MG, OVER 24 HOURS
     Route: 058
     Dates: start: 20120729, end: 20120730
  12. HALOPERIDOL [Concomitant]
     Dosage: 2.5 MG, EVERY 24 HOURS
     Route: 058
  13. HYOSCINE BUTYLBROMIDE [Concomitant]
     Dosage: 60 MG, EVERY 24 HOURS
     Route: 058
  14. PARACETAMOL [Concomitant]
     Indication: PAIN
     Dosage: 1 G, 3X/DAY
     Route: 048
     Dates: start: 20120621, end: 20120729
  15. IBUPROFEN [Concomitant]
     Indication: PAIN
     Dosage: 400 MG, 3X/DAY, AS NEEDED
     Route: 048
     Dates: start: 20120619, end: 20120718
  16. MST [Concomitant]
     Indication: PAIN
     Dosage: 10 MG, 2X/DAY
     Route: 048
     Dates: start: 2012, end: 20120725
  17. MST [Concomitant]
     Dosage: 20 MG, 2X/DAY
     Route: 048
     Dates: start: 20120725, end: 20120729
  18. ORAMORPH [Concomitant]
     Indication: PAIN
     Dosage: 2.5-5MG 4 HRLY/PRN
     Route: 048
     Dates: start: 20120619, end: 20120718
  19. ORAMORPH [Concomitant]
     Dosage: 5 MG, AS NEEDED
     Route: 048
     Dates: start: 20120718, end: 20120729
  20. ORAMORPH [Concomitant]
     Dosage: 2.5 MG, AS NEEDED
     Route: 058
     Dates: start: 20120729
  21. METOCLOPRAMIDE [Concomitant]
     Indication: MALAISE
     Dosage: 10 MG, 3X/DAY
     Route: 048
     Dates: start: 20120620, end: 20120718
  22. METOCLOPRAMIDE [Concomitant]
     Dosage: 20 MG, 3X/DAY
     Route: 048
     Dates: start: 20120718, end: 20120722
  23. ENOXAPARIN [Concomitant]
     Indication: THROMBOSIS PROPHYLAXIS
     Dosage: 40 MG, 1X/DAY
     Route: 058
     Dates: start: 20120718, end: 20120724
  24. OMEPRAZOLE [Concomitant]
     Indication: MALAISE
     Dosage: 20 MG, 1X/DAY
     Route: 048
     Dates: start: 20120718, end: 20120802
  25. DOCUSATE SODIUM [Concomitant]
     Indication: CONSTIPATION
     Dosage: 200 MG, 2X/DAY
     Route: 048
     Dates: start: 20120722, end: 20120731
  26. LEVOMEPROMAZINE [Concomitant]
     Indication: ANTIEMETIC SUPPORTIVE CARE
     Dosage: 6.25 MG, 4X/DAY, AS NEEDED
     Route: 058
     Dates: start: 20120719, end: 20120721
  27. LEVOMEPROMAZINE [Concomitant]
     Dosage: 6.25 MG, AT NIGHT
     Route: 058
     Dates: start: 20120725, end: 20120729
  28. LEVOMEPROMAZINE [Concomitant]
     Dosage: 6.25 MG, 4X/DAY, AS NEEDED
     Route: 058
     Dates: start: 20120729
  29. ONDANSETRON [Concomitant]
     Indication: ANTIEMETIC SUPPORTIVE CARE
     Dosage: 8 MG, 2X/DAY, AS NEEDED
     Dates: start: 20120719, end: 20120725

REACTIONS (2)
  - Disease progression [Fatal]
  - Metastatic ocular melanoma [Fatal]
